FAERS Safety Report 11840496 (Version 1)
Quarter: 2015Q4

REPORT INFORMATION
  Report Type: Spontaneous
  Country: US (occurrence: US)
  Receive Date: 20151216
  Receipt Date: 20151216
  Transmission Date: 20160305
  Serious: No
  Sender: FDA-Public Use
  Company Number: US-ASTRAZENECA-2015SF23800

PATIENT
  Sex: Female
  Weight: 90.7 kg

DRUGS (9)
  1. LASIX [Concomitant]
     Active Substance: FUROSEMIDE
     Indication: FLUID RETENTION
     Route: 048
  2. SYMBICORT [Suspect]
     Active Substance: BUDESONIDE\FORMOTEROL FUMARATE DIHYDRATE
     Indication: CHRONIC OBSTRUCTIVE PULMONARY DISEASE
     Dosage: 160/4.5 MCG 2 PUFFS 2 TIMES PER DAY
     Route: 055
     Dates: start: 20150901
  3. ALLOPURINOL. [Concomitant]
     Active Substance: ALLOPURINOL
     Indication: BLOOD PRESSURE ABNORMAL
     Route: 048
     Dates: start: 201509
  4. POTASSIUM CHLORIDE. [Concomitant]
     Active Substance: POTASSIUM CHLORIDE
     Indication: FLUID RETENTION
     Route: 048
  5. VALIUM [Concomitant]
     Active Substance: DIAZEPAM
     Indication: NERVOUSNESS
     Route: 048
  6. METOPROLOL TARTRATE. [Concomitant]
     Active Substance: METOPROLOL TARTRATE
     Indication: BLOOD PRESSURE ABNORMAL
     Route: 048
  7. SIMVASTATIN. [Concomitant]
     Active Substance: SIMVASTATIN
     Indication: BLOOD CHOLESTEROL ABNORMAL
     Route: 048
  8. VALIUM [Concomitant]
     Active Substance: DIAZEPAM
     Indication: HEADACHE
     Route: 048
  9. LORTAB [Concomitant]
     Active Substance: ACETAMINOPHEN\HYDROCODONE BITARTRATE
     Indication: KNEE OPERATION
     Route: 048
     Dates: start: 201409

REACTIONS (4)
  - Throat irritation [Unknown]
  - Intentional device misuse [Unknown]
  - Drug dose omission [Unknown]
  - Product quality issue [Unknown]
